FAERS Safety Report 9144596 (Version 4)
Quarter: 2013Q2

REPORT INFORMATION
  Report Type: Spontaneous
  Country: FR (occurrence: FR)
  Receive Date: 20130306
  Receipt Date: 20130508
  Transmission Date: 20140414
  Serious: Yes (Death, Hospitalization, Other)
  Sender: FDA-Public Use
  Company Number: FR-ACTELION-A-CH2013-80180

PATIENT
  Age: 75 Year
  Sex: Female

DRUGS (10)
  1. TRACLEER [Suspect]
     Indication: PULMONARY ARTERIAL HYPERTENSION
     Dosage: 125 MG, BID
     Route: 048
     Dates: start: 20120121, end: 20130127
  2. TRACLEER [Suspect]
     Dosage: 62.5 MG, BID
     Route: 048
     Dates: start: 20101206, end: 20120120
  3. TRACLEER [Suspect]
     Dosage: UNK
     Route: 048
  4. CORTANCYL [Concomitant]
  5. LEVOTHYROX [Concomitant]
  6. TAHOR [Concomitant]
  7. CO RENITEC [Concomitant]
  8. KARDEGIC [Concomitant]
  9. SPECIAFOLDINE [Concomitant]
  10. ESOMEPRAZOLE [Concomitant]

REACTIONS (5)
  - Death [Fatal]
  - Thrombocytopenia [Not Recovered/Not Resolved]
  - Platelet transfusion [Not Recovered/Not Resolved]
  - Gastrointestinal haemorrhage [Unknown]
  - Myelodysplastic syndrome [Unknown]
